FAERS Safety Report 7998073-2 (Version None)
Quarter: 2011Q4

REPORT INFORMATION
  Report Type: 
  Country: None (occurrence: None)
  Receive Date: 20111221
  Receipt Date: 20110105
  Transmission Date: 20120403
  Serious: No
  Sender: FDA-Public Use
  Company Number: US-GLAXOSMITHKLINE-A0903324A

PATIENT
  Age: 59 Year
  Sex: Female

DRUGS (2)
  1. OTHER MEDICATIONS [Concomitant]
  2. LOVAZA [Suspect]
     Indication: BLOOD TRIGLYCERIDES INCREASED
     Dosage: 2CAP PER DAY
     Route: 048
     Dates: start: 20100101, end: 20100901

REACTIONS (3)
  - VOMITING [None]
  - RETCHING [None]
  - MYALGIA [None]
